FAERS Safety Report 22652005 (Version 1)
Quarter: 2023Q2

REPORT INFORMATION
  Report Type: Spontaneous
  Country: US (occurrence: US)
  Receive Date: 20230628
  Receipt Date: 20230628
  Transmission Date: 20230722
  Serious: No
  Sender: FDA-Public Use
  Company Number: US-UPSHER-SMITH LABORATORIES, LLC-2022USL00596

PATIENT
  Sex: Female

DRUGS (1)
  1. MORPHINE SULFATE [Suspect]
     Active Substance: MORPHINE SULFATE
     Dosage: 30 MG, 1X/DAY
     Route: 048

REACTIONS (3)
  - Withdrawal syndrome [Unknown]
  - Diarrhoea [Unknown]
  - Poor quality product administered [Not Recovered/Not Resolved]

NARRATIVE: CASE EVENT DATE: 20220101
